FAERS Safety Report 6416871-3 (Version None)
Quarter: 2009Q4

REPORT INFORMATION
  Report Type: 
  Country: None (occurrence: None)
  Receive Date: 20091027
  Receipt Date: 20091013
  Transmission Date: 20100525
  Serious: Yes (Other)
  Sender: FDA-Public Use
  Company Number: GB-MYLANLABS-2009S1017938

PATIENT
  Sex: Female

DRUGS (2)
  1. VALPROATE SODIUM [Suspect]
     Indication: CLONIC CONVULSION
     Route: 048
     Dates: start: 20021001
  2. CLOZARIL [Suspect]
     Indication: SCHIZOPHRENIA
     Route: 048
     Dates: start: 20020521

REACTIONS (3)
  - EMOTIONAL DISORDER [None]
  - MYOCLONUS [None]
  - WEIGHT INCREASED [None]
